FAERS Safety Report 9171314 (Version 1)
Quarter: 2013Q1

REPORT INFORMATION
  Report Type: Spontaneous
  Country: US (occurrence: None)
  Receive Date: 20130318
  Receipt Date: 20130318
  Transmission Date: 20140127
  Serious: Yes (Life-Threatening, Hospitalization, Disabling)
  Sender: FDA-Public Use
  Company Number: None

PATIENT
  Age: 63 Year
  Sex: Male
  Weight: 127.01 kg

DRUGS (1)
  1. Z-PACK-ZITHROM [Suspect]
     Indication: NASOPHARYNGITIS
     Dates: start: 20120605, end: 20120610

REACTIONS (2)
  - Myocardial infarction [None]
  - Atrial fibrillation [None]
